FAERS Safety Report 4907801-1 (Version None)
Quarter: 2006Q1

REPORT INFORMATION
  Report Type: 
  Country: None (occurrence: None)
  Receive Date: 20060208
  Receipt Date: 20060125
  Transmission Date: 20060701
  Serious: Yes (Life-Threatening, Hospitalization)
  Sender: FDA-Public Use
  Company Number: 2005P1000621

PATIENT
  Age: 52 Year
  Sex: Female
  Weight: 83 kg

DRUGS (7)
  1. RETEPLASE (RETEPLASE) [Suspect]
     Indication: ACUTE MYOCARDIAL INFARCTION
     Dosage: IV
     Route: 042
     Dates: start: 20040830, end: 20040830
  2. ABCIXIMAB (ABCIXIMAB) [Suspect]
     Indication: ACUTE MYOCARDIAL INFARCTION
     Dosage: IV
     Route: 042
     Dates: start: 20040830, end: 20040830
  3. ASPIRIN [Concomitant]
  4. CLOPIDOGREL [Concomitant]
  5. RAMIPRIL [Concomitant]
  6. METOPROLOL [Concomitant]
  7. RANITIDINE [Concomitant]

REACTIONS (7)
  - ATRIAL FIBRILLATION [None]
  - CORONARY ARTERY OCCLUSION [None]
  - CORONARY ARTERY STENOSIS [None]
  - HAEMOGLOBIN DECREASED [None]
  - VENTRICULAR FIBRILLATION [None]
  - VENTRICULAR HYPOKINESIA [None]
  - VESSEL PUNCTURE SITE HAEMORRHAGE [None]
